FAERS Safety Report 9916675 (Version 1)
Quarter: 2014Q1

REPORT INFORMATION
  Report Type: Spontaneous
  Country: FR (occurrence: FR)
  Receive Date: 20140221
  Receipt Date: 20140221
  Transmission Date: 20141002
  Serious: Yes (Other)
  Sender: FDA-Public Use
  Company Number: FR-UCBSA-112484

PATIENT
  Age: 57 Year
  Sex: Female

DRUGS (1)
  1. CIMZIA [Suspect]
     Indication: RHEUMATOID ARTHRITIS
     Dosage: 200 MG , FIRST(SINGLE) INJECTION
     Route: 058
     Dates: start: 201401, end: 201401

REACTIONS (2)
  - Face oedema [Recovered/Resolved]
  - Paraesthesia [Recovered/Resolved]
